FAERS Safety Report 15337533 (Version 2)
Quarter: 2018Q3

REPORT INFORMATION
  Report Type: Spontaneous
  Country: US (occurrence: US)
  Receive Date: 20180831
  Receipt Date: 20180925
  Transmission Date: 20181010
  Serious: No
  Sender: FDA-Public Use
  Company Number: US-PFIZER INC-2018348627

PATIENT
  Sex: Female

DRUGS (1)
  1. ARTHROTEC [Suspect]
     Active Substance: DICLOFENAC SODIUM\MISOPROSTOL
     Dosage: 1 DF, 2X/DAY (1 TABLET, TWICE DAILY (DICLOFENAC SODIUM: 75 MG;MISOPROSTOL: 200 MG))

REACTIONS (3)
  - Drug dose omission [Unknown]
  - Gait disturbance [Unknown]
  - Back disorder [Unknown]
